FAERS Safety Report 18321892 (Version 3)
Quarter: 2020Q4

REPORT INFORMATION
  Report Type: Spontaneous
  Country: US (occurrence: US)
  Receive Date: 20200928
  Receipt Date: 20201218
  Transmission Date: 20210113
  Serious: No
  Sender: FDA-Public Use
  Company Number: US-PFIZER INC-2019532726

PATIENT
  Age: 82 Year
  Sex: Female

DRUGS (6)
  1. NICOTROL [Suspect]
     Active Substance: NICOTINE
     Indication: CHRONIC OBSTRUCTIVE PULMONARY DISEASE
     Dosage: 10 MG, UNK (10 MG X 3 - 90 DAY SUPPLY/168/BOX/3 BOXES/90 DAY)
     Dates: start: 2010
  2. NICOTROL [Suspect]
     Active Substance: NICOTINE
     Indication: CHRONIC RESPIRATORY FAILURE
  3. ALBUTEROL SULFATE. [Concomitant]
     Active Substance: ALBUTEROL SULFATE
     Dosage: UNK, AS NEEDED
  4. NICOTROL [Suspect]
     Active Substance: NICOTINE
     Indication: SMOKING CESSATION THERAPY
     Dosage: 1 DF, AS NEEDED (INHALE 1 PUFF INTO THE LUNGS AS NEEDED, UP TO 6 CARTRIDGES/DAY)
     Route: 055
  5. DUONEB [Concomitant]
     Active Substance: ALBUTEROL SULFATE\IPRATROPIUM BROMIDE
     Dosage: UNK, 4X/DAY (CURRENTLY ON DUO NEBS 4 TIMES A DAY)
  6. ASMANEX [Concomitant]
     Active Substance: MOMETASONE FUROATE
     Dosage: 220 UG, 2X/DAY (220 MCG 1 PUFF TWICE A DAY)
     Route: 055

REACTIONS (1)
  - Mobility decreased [Not Recovered/Not Resolved]
